FAERS Safety Report 15535879 (Version 1)
Quarter: 2018Q4

REPORT INFORMATION
  Report Type: Spontaneous
  Country: US (occurrence: US)
  Receive Date: 20181022
  Receipt Date: 20181022
  Transmission Date: 20190205
  Serious: No
  Sender: FDA-Public Use
  Company Number: US-JNJFOC-20181007902

PATIENT
  Age: 32 Year
  Sex: Female
  Weight: 70.31 kg

DRUGS (1)
  1. INVEGA SUSTENNA [Suspect]
     Active Substance: PALIPERIDONE PALMITATE
     Indication: SCHIZOPHRENIA
     Route: 030
     Dates: start: 2018, end: 2018

REACTIONS (1)
  - Homicidal ideation [Not Recovered/Not Resolved]

NARRATIVE: CASE EVENT DATE: 2018
